FAERS Safety Report 11258328 (Version 4)
Quarter: 2015Q4

REPORT INFORMATION
  Report Type: Spontaneous
  Country: GB (occurrence: GB)
  Receive Date: 20150710
  Receipt Date: 20151030
  Transmission Date: 20160304
  Serious: Yes (Other)
  Sender: FDA-Public Use
  Company Number: GB-AMGEN-GBRSP2015067871

PATIENT
  Age: 74 Year
  Sex: Male
  Weight: 97.8 kg

DRUGS (7)
  1. ATORVASTATIN CALCIUM. [Concomitant]
     Active Substance: ATORVASTATIN CALCIUM
     Dosage: 10 MG, DAILY
  2. ASPIRIN                            /00002701/ [Concomitant]
     Active Substance: ASPIRIN
     Dosage: 75 MG, DAILY
  3. COLCHICINE. [Concomitant]
     Active Substance: COLCHICINE
     Dosage: 250 MUG, DAILY
  4. BISOPROLOL FUMARATE. [Suspect]
     Active Substance: BISOPROLOL FUMARATE
     Indication: CARDIAC FAILURE
     Dosage: 1.25 MG, UNK
     Route: 048
     Dates: start: 20150424
  5. IVABRADINE [Suspect]
     Active Substance: IVABRADINE
     Indication: CARDIAC FAILURE
     Dosage: 5 MG, BID
     Route: 048
     Dates: start: 20150414
  6. BUMETANIDE. [Concomitant]
     Active Substance: BUMETANIDE
     Indication: FLUID OVERLOAD
     Dosage: 8 MG, DAILY
     Dates: start: 20150530
  7. TAMSULOSIN [Concomitant]
     Active Substance: TAMSULOSIN
     Dosage: 400 MUG, DAILY

REACTIONS (3)
  - Cardiac failure [Recovered/Resolved]
  - Blood creatinine increased [Recovered/Resolved]
  - Blood urea increased [Not Recovered/Not Resolved]

NARRATIVE: CASE EVENT DATE: 20150528
